FAERS Safety Report 6548788-8 (Version None)
Quarter: 2010Q1

REPORT INFORMATION
  Report Type: 
  Country: None (occurrence: None)
  Receive Date: 20100124
  Receipt Date: 20091117
  Transmission Date: 20100710
  Serious: No
  Sender: FDA-Public Use
  Company Number: US-ALLERGAN-0916015US

PATIENT
  Sex: Female

DRUGS (1)
  1. RESTASIS [Suspect]
     Indication: DRUG USE FOR UNKNOWN INDICATION

REACTIONS (5)
  - EYE IRRITATION [None]
  - EYE PAIN [None]
  - EYELID OEDEMA [None]
  - OCULAR HYPERAEMIA [None]
  - VISUAL IMPAIRMENT [None]
